FAERS Safety Report 25534972 (Version 1)
Quarter: 2025Q3

REPORT INFORMATION
  Report Type: Report from Study
  Country: US (occurrence: US)
  Receive Date: 20250709
  Receipt Date: 20250709
  Transmission Date: 20251020
  Serious: Yes (Hospitalization)
  Sender: ABBVIE
  Company Number: US-ABBVIE-6361158

PATIENT
  Age: 21 Year
  Sex: Male

DRUGS (1)
  1. HUMIRA [Suspect]
     Active Substance: ADALIMUMAB
     Indication: Crohn^s disease
     Dosage: DOSE: 40 MILLIGRAM/KG/MIN
     Route: 058
     Dates: start: 20250618

REACTIONS (4)
  - Haemoglobin abnormal [Recovering/Resolving]
  - Unevaluable event [Unknown]
  - Fatigue [Unknown]
  - Dysstasia [Unknown]

NARRATIVE: CASE EVENT DATE: 20250101
